FAERS Safety Report 6647312-9 (Version None)
Quarter: 2010Q1

REPORT INFORMATION
  Report Type: 
  Country: None (occurrence: None)
  Receive Date: 20100323
  Receipt Date: 20100312
  Transmission Date: 20100710
  Serious: Yes (Life-Threatening, Hospitalization)
  Sender: FDA-Public Use
  Company Number: B0631707A

PATIENT
  Sex: Female
  Weight: 60 kg

DRUGS (8)
  1. ARIXTRA [Suspect]
     Dosage: 2.5MG PER DAY
     Route: 058
     Dates: start: 20091217, end: 20100105
  2. SERETIDE DISKUS [Concomitant]
     Indication: BRONCHITIS
     Route: 055
     Dates: start: 20091217
  3. SEROPRAM [Concomitant]
     Indication: DEPRESSION
     Dosage: 20MG PER DAY
     Route: 048
     Dates: start: 20091217
  4. SPASFON [Concomitant]
     Indication: ABDOMINAL PAIN
     Route: 048
     Dates: start: 20091218
  5. ESIDRIX [Concomitant]
     Dosage: 25MG PER DAY
     Route: 048
     Dates: start: 20100105
  6. NEXIUM [Concomitant]
     Indication: ULCER
     Route: 048
     Dates: start: 20091217
  7. NICOPATCH [Concomitant]
     Indication: NICOTINE DEPENDENCE
     Dosage: 14MG PER DAY
     Route: 062
     Dates: start: 20091217
  8. ANTI PNEUMOCOCCAL VACCINE [Concomitant]
     Indication: PROPHYLAXIS

REACTIONS (13)
  - ASTHENIA [None]
  - HAEMATOMA [None]
  - HYPOTHERMIA [None]
  - INTRA-ABDOMINAL HAEMATOMA [None]
  - INTRA-ABDOMINAL HAEMORRHAGE [None]
  - MALAISE [None]
  - NIGHT SWEATS [None]
  - OFF LABEL USE [None]
  - POST PROCEDURAL COMPLICATION [None]
  - RESPIRATORY DISTRESS [None]
  - SHOCK [None]
  - SPLENIC RUPTURE [None]
  - WEIGHT DECREASED [None]
